FAERS Safety Report 5072171-8 (Version None)
Quarter: 2006Q3

REPORT INFORMATION
  Report Type: 
  Country: None (occurrence: None)
  Receive Date: 20060801
  Receipt Date: 20060721
  Transmission Date: 20061208
  Serious: Yes (Other)
  Sender: FDA-Public Use
  Company Number: 2006090853

PATIENT
  Sex: Female

DRUGS (7)
  1. LIPITOR [Suspect]
     Indication: BLOOD CHOLESTEROL INCREASED
     Dosage: 40 MG
     Dates: start: 20030101
  2. LYRICA [Suspect]
     Indication: POST HERPETIC NEURALGIA
     Dosage: 150 MG (50 MG, 3 IN 1 D)
     Dates: start: 20060718
  3. MAXIDE (HYDROCHLOROTHIAZIDE, TRIAMTERENE) [Concomitant]
  4. METOPROLOL (METOPROLOL) [Concomitant]
  5. SYNTHROID (LEVOTHYROXNE SODIUM) [Concomitant]
  6. ESTRACE [Concomitant]
  7. ASPIRIN [Concomitant]

REACTIONS (7)
  - BALANCE DISORDER [None]
  - BLOOD TRIGLYCERIDES INCREASED [None]
  - GAIT DISTURBANCE [None]
  - HALLUCINATION [None]
  - HERPES ZOSTER [None]
  - RESTLESSNESS [None]
  - SLEEP TALKING [None]
